FAERS Safety Report 7820507-4 (Version None)
Quarter: 2011Q4

REPORT INFORMATION
  Report Type: 
  Country: None (occurrence: None)
  Receive Date: 20111018
  Receipt Date: 20111003
  Transmission Date: 20120403
  Serious: Yes (Other)
  Sender: FDA-Public Use
  Company Number: US-BAYER-2011-024661

PATIENT
  Age: 26 Year
  Sex: Female
  Weight: 63.492 kg

DRUGS (7)
  1. CELEXA [Concomitant]
     Dosage: 20 UNK, UNK
     Route: 048
  2. YAZ [Suspect]
     Indication: CONTRACEPTION
     Dosage: UNK UNK, QD
     Route: 048
     Dates: start: 20070101, end: 20080101
  3. NEXIUM [Concomitant]
     Dosage: 40 MG, UNK
     Route: 048
  4. YASMIN [Suspect]
     Indication: CONTRACEPTION
     Dosage: UNK
     Dates: start: 20070101, end: 20080101
  5. YASMIN [Suspect]
     Indication: DYSMENORRHOEA
  6. YAZ [Suspect]
     Indication: DYSMENORRHOEA
  7. DONNATAL [Concomitant]
     Dosage: UNK UNK, TID

REACTIONS (4)
  - CHOLECYSTITIS CHRONIC [None]
  - ABDOMINAL DISCOMFORT [None]
  - CHOLELITHIASIS [None]
  - PAIN [None]
